FAERS Safety Report 19109340 (Version 1)
Quarter: 2021Q2

REPORT INFORMATION
  Report Type: Spontaneous
  Country: IN (occurrence: IN)
  Receive Date: 20210408
  Receipt Date: 20210408
  Transmission Date: 20210717
  Serious: Yes (Other)
  Sender: FDA-Public Use
  Company Number: IN-TORRENT-00002789

PATIENT
  Age: 43 Year
  Sex: Female

DRUGS (4)
  1. CARBAMAZEPINE. [Suspect]
     Active Substance: CARBAMAZEPINE
     Indication: HERPES ZOSTER
     Dosage: UNKNOWN
  2. ACICLOVIR [Concomitant]
     Active Substance: ACYCLOVIR
     Indication: HERPES ZOSTER
     Dosage: UNKNOWN
  3. PARACETAMOL [Concomitant]
     Active Substance: ACETAMINOPHEN
     Indication: HERPES ZOSTER
     Dosage: UNKNOWN
  4. ACECLOFENAC [Concomitant]
     Active Substance: ACECLOFENAC
     Indication: HERPES ZOSTER
     Dosage: UNKNOWN

REACTIONS (2)
  - Fixed eruption [Recovering/Resolving]
  - Dermatitis bullous [Recovering/Resolving]
